FAERS Safety Report 23976911 (Version 2)
Quarter: 2024Q4

REPORT INFORMATION
  Report Type: Spontaneous
  Country: JP (occurrence: JP)
  Receive Date: 20240614
  Receipt Date: 20241211
  Transmission Date: 20250115
  Serious: Yes (Other)
  Sender: EISAI
  Company Number: JP-Eisai-202402855_LEN-HCC_P_1

PATIENT
  Sex: Male

DRUGS (1)
  1. LENVIMA [Suspect]
     Active Substance: LENVATINIB
     Indication: Hepatocellular carcinoma
     Dosage: DOSE AND FREQUENCY UNKNOWN
     Route: 048
     Dates: start: 20240510

REACTIONS (1)
  - Tumour haemorrhage [Unknown]

NARRATIVE: CASE EVENT DATE: 20240522
